FAERS Safety Report 19824566 (Version 2)
Quarter: 2021Q3

REPORT INFORMATION
  Report Type: Spontaneous
  Country: US (occurrence: US)
  Receive Date: 20210914
  Receipt Date: 20210920
  Transmission Date: 20211014
  Serious: No
  Sender: FDA-Public Use
  Company Number: US-DRREDDYS-LIT/USA/21/0139805

PATIENT
  Age: 65 Year
  Sex: Female

DRUGS (3)
  1. OXYCODONE [Suspect]
     Active Substance: OXYCODONE
     Indication: BREAST CANCER
  2. PREGABALIN. [Suspect]
     Active Substance: PREGABALIN
     Indication: BREAST CANCER
  3. HYDROCODONE [Suspect]
     Active Substance: HYDROCODONE
     Indication: BREAST CANCER

REACTIONS (1)
  - Sedation [Unknown]
